FAERS Safety Report 23771599 (Version 2)
Quarter: 2024Q2

REPORT INFORMATION
  Report Type: Spontaneous
  Country: US (occurrence: US)
  Receive Date: 20240423
  Receipt Date: 20240507
  Transmission Date: 20240716
  Serious: Yes (Hospitalization)
  Sender: FDA-Public Use
  Company Number: US-ELI_LILLY_AND_COMPANY-US202404013750

PATIENT
  Age: 77 Year
  Sex: Male

DRUGS (4)
  1. MOUNJARO [Suspect]
     Active Substance: TIRZEPATIDE
     Indication: Glycosylated haemoglobin abnormal
     Dosage: 2.5 MG, UNKNOWN
     Route: 058
     Dates: start: 20240412
  2. MOUNJARO [Suspect]
     Active Substance: TIRZEPATIDE
     Indication: Glycosylated haemoglobin abnormal
     Dosage: 2.5 MG, UNKNOWN
     Route: 058
     Dates: start: 20240412
  3. MOUNJARO [Suspect]
     Active Substance: TIRZEPATIDE
     Indication: Glycosylated haemoglobin abnormal
     Dosage: 2.5 MG, UNKNOWN
     Route: 058
     Dates: start: 20240412
  4. MOUNJARO [Suspect]
     Active Substance: TIRZEPATIDE
     Indication: Glycosylated haemoglobin abnormal
     Dosage: 2.5 MG, UNKNOWN
     Route: 058
     Dates: start: 20240412

REACTIONS (9)
  - Diarrhoea [Recovered/Resolved]
  - Chills [Recovering/Resolving]
  - Blood electrolytes decreased [Recovered/Resolved]
  - Sleep disorder due to a general medical condition [Recovered/Resolved]
  - Fatigue [Recovering/Resolving]
  - Flatulence [Recovering/Resolving]
  - Eructation [Recovered/Resolved]
  - Abdominal pain upper [Recovered/Resolved]
  - Dyspepsia [Recovered/Resolved]

NARRATIVE: CASE EVENT DATE: 20240401
